FAERS Safety Report 9410879 (Version 1)
Quarter: 2013Q3

REPORT INFORMATION
  Report Type: Spontaneous
  Country: US (occurrence: US)
  Receive Date: 20130719
  Receipt Date: 20130719
  Transmission Date: 20140515
  Serious: Yes (Other)
  Sender: FDA-Public Use
  Company Number: CHPA2013US011213

PATIENT
  Sex: Female

DRUGS (8)
  1. EXCEDRIN MIGRAINE [Suspect]
     Indication: MIGRAINE
     Dosage: 2 DF, UNK
     Route: 048
  2. EXCEDRIN MIGRAINE [Suspect]
     Indication: MIGRAINE
     Dosage: 1 DF, UNK
     Route: 048
  3. MOTRIN [Concomitant]
     Indication: BONE PAIN
  4. CODEINE [Concomitant]
     Indication: MIGRAINE
  5. IMITREX ^CERENEX^ [Concomitant]
     Indication: MIGRAINE
  6. CYMBALTA [Concomitant]
     Indication: FIBROMYALGIA
  7. LYRICA [Concomitant]
     Indication: FIBROMYALGIA
  8. ZYRTEC [Concomitant]

REACTIONS (5)
  - Spinal cord herniation [Unknown]
  - Road traffic accident [Unknown]
  - Migraine [Recovering/Resolving]
  - Disease recurrence [Not Recovered/Not Resolved]
  - Therapeutic response decreased [Unknown]
